FAERS Safety Report 19100005 (Version 6)
Quarter: 2021Q3

REPORT INFORMATION
  Report Type: Spontaneous
  Country: CA (occurrence: CA)
  Receive Date: 20210407
  Receipt Date: 20210714
  Transmission Date: 20211014
  Serious: Yes (Other)
  Sender: FDA-Public Use
  Company Number: CA-CELLTRION INC.-2020CA033531

PATIENT

DRUGS (15)
  1. INFLECTRA [Suspect]
     Active Substance: INFLIXIMAB-DYYB
     Dosage: 300 MG AT 0, 2 WEEKS, THEN EVERY 8 WEEKS
     Route: 042
     Dates: start: 20210618, end: 20210618
  2. INFLECTRA [Suspect]
     Active Substance: INFLIXIMAB-DYYB
     Dosage: 300 MG AT 0,2, 6, THEN EVERY 8 WEEKS
     Route: 042
     Dates: start: 20201229
  3. INFLECTRA [Suspect]
     Active Substance: INFLIXIMAB-DYYB
     Dosage: 10 MG/KG AND EVERY 8 WEEKS
     Route: 042
     Dates: start: 20210409
  4. IMURAN [Concomitant]
     Active Substance: AZATHIOPRINE
     Dosage: 1 DF (UNK DOSE)
     Route: 065
  5. INFLECTRA [Suspect]
     Active Substance: INFLIXIMAB-DYYB
     Dosage: 10 MG/KG AND EVERY 8 WEEKS FOR RELOAD DOSE
     Route: 042
     Dates: start: 20210326, end: 20210326
  6. RESTORALAX [Concomitant]
     Active Substance: POLYETHYLENE GLYCOL 3350
     Dosage: UNK TAKEN AT TIMES (AS NEEDED), UNK DOSE
     Route: 065
  7. RESTORALAX [Concomitant]
     Active Substance: POLYETHYLENE GLYCOL 3350
     Dosage: 1 DF (UNK DOSE)
     Route: 065
  8. INFLECTRA [Suspect]
     Active Substance: INFLIXIMAB-DYYB
     Dosage: 10 MG/KG AND EVERY 8 WEEKS
     Route: 042
     Dates: start: 20210513
  9. INFLECTRA [Suspect]
     Active Substance: INFLIXIMAB-DYYB
     Dosage: 10 MG/KG AND EVERY 8 WEEKS
     Route: 042
     Dates: start: 20210513
  10. SALOFALK [MESALAZINE] [Concomitant]
     Active Substance: MESALAMINE
     Dosage: 1 DF (UNK DOSE)
     Route: 065
  11. INFLECTRA [Suspect]
     Active Substance: INFLIXIMAB-DYYB
     Indication: CROHN^S DISEASE
     Dosage: 300 MG AT 0,2, 6, THEN EVERY 8 WEEKS
     Route: 042
     Dates: start: 20201112
  12. INFLECTRA [Suspect]
     Active Substance: INFLIXIMAB-DYYB
     Dosage: 300 MG AT 0,2, 6, THEN EVERY 8 WEEKS
     Route: 042
     Dates: start: 20210126
  13. INFLECTRA [Suspect]
     Active Substance: INFLIXIMAB-DYYB
     Dosage: 300 MG AT 0,2, 6, THEN EVERY 8 WEEKS
     Route: 042
     Dates: start: 20210301
  14. CITALOPRAM [Concomitant]
     Active Substance: CITALOPRAM HYDROBROMIDE
     Indication: DEPRESSION
     Dosage: 1 DF (UNK DOSE)
     Route: 065
  15. INFLECTRA [Suspect]
     Active Substance: INFLIXIMAB-DYYB
     Dosage: 300 MG AT 0,2, 6, THEN EVERY 8 WEEKS
     Route: 042
     Dates: start: 20201126

REACTIONS (13)
  - Arthralgia [Unknown]
  - Skin ulcer [Unknown]
  - Eye ulcer [Unknown]
  - Mouth ulceration [Unknown]
  - Condition aggravated [Not Recovered/Not Resolved]
  - Blood pressure systolic increased [Unknown]
  - Heart rate decreased [Unknown]
  - Weight increased [Not Recovered/Not Resolved]
  - Pustule [Unknown]
  - Weight decreased [Unknown]
  - Uveitis [Unknown]
  - Body temperature decreased [Unknown]
  - Food allergy [Unknown]

NARRATIVE: CASE EVENT DATE: 2020
